FAERS Safety Report 7932348 (Version 3)
Quarter: 2012Q4

REPORT INFORMATION
  Report Type: 
  Country: US (occurrence: US)
  Receive Date: 20110505
  Receipt Date: 20121115
  Transmission Date: 20130627
  Serious: Yes (Other)
  Sender: FDA-Public Use
  Company Number: US-AMGEN-USASP2010005177

PATIENT
  Age: 61 Year
  Sex: Female

DRUGS (8)
  1. VECTIBIX [Suspect]
     Indication: PRODUCT USED FOR UNKNOWN INDICATION
     Dosage: 726 mg, q2wk
     Dates: start: 20101026
  2. VECTIBIX [Suspect]
     Dosage: UNK
  3. MAGNESIUM [Concomitant]
     Dosage: 400 mg, qd
     Dates: end: 20101025
  4. MAGNESIUM [Concomitant]
     Dosage: 400 mg, tid
     Dates: start: 2010, end: 20101110
  5. MAGNESIUM [Concomitant]
     Dosage: 3 mg, qd
     Dates: start: 20101110
  6. MINOCYCLINE [Concomitant]
     Dosage: 100 mg, qd
     Dates: end: 20101025
  7. MINOCYCLINE [Concomitant]
     Dosage: 100 mg, bid
     Dates: end: 20101110
  8. MINOCYCLINE [Concomitant]
     Dosage: 3 mg, qd
     Dates: start: 20101101

REACTIONS (5)
  - Skin reaction [Not Recovered/Not Resolved]
  - Erythema [Not Recovered/Not Resolved]
  - Skin exfoliation [Not Recovered/Not Resolved]
  - Skin fissures [Recovered/Resolved]
  - Rash [Unknown]
